FAERS Safety Report 7954359-9 (Version None)
Quarter: 2011Q4

REPORT INFORMATION
  Report Type: 
  Country: None (occurrence: None)
  Receive Date: 20111202
  Receipt Date: 20111122
  Transmission Date: 20120403
  Serious: Yes (Other)
  Sender: FDA-Public Use
  Company Number: CA-JNJFOC-20111110905

PATIENT
  Sex: Male
  Weight: 104.33 kg

DRUGS (2)
  1. AZATHIOPRINE [Concomitant]
  2. REMICADE [Suspect]
     Indication: CROHN'S DISEASE
     Route: 042
     Dates: start: 20101201

REACTIONS (4)
  - PHARYNGITIS [None]
  - VISUAL IMPAIRMENT [None]
  - NASOPHARYNGITIS [None]
  - HEADACHE [None]
